FAERS Safety Report 21338094 (Version 3)
Quarter: 2022Q4

REPORT INFORMATION
  Report Type: Spontaneous
  Country: US (occurrence: US)
  Receive Date: 20220915
  Receipt Date: 20221103
  Transmission Date: 20230113
  Serious: Yes (Other)
  Sender: FDA-Public Use
  Company Number: US-PFIZER INC-202201151504

PATIENT
  Age: 83 Year
  Sex: Female

DRUGS (2)
  1. PREMARIN [Suspect]
     Active Substance: ESTROGENS, CONJUGATED
     Indication: Vulvovaginal pain
     Dosage: 1/2 OF FULL APPLICATOR
     Dates: start: 20220828
  2. PREMARIN [Suspect]
     Active Substance: ESTROGENS, CONJUGATED
     Indication: Vulvovaginal dryness
     Dosage: 0.5 DF, 2X/WEEK
     Dates: start: 2022

REACTIONS (5)
  - Vaginal infection [Unknown]
  - Vulvovaginal pruritus [Unknown]
  - Vulvovaginal burning sensation [Unknown]
  - Vulvovaginal discomfort [Unknown]
  - Intentional product misuse [Unknown]

NARRATIVE: CASE EVENT DATE: 20220101
